FAERS Safety Report 20421383 (Version 1)
Quarter: 2022Q1

REPORT INFORMATION
  Report Type: Spontaneous
  Country: US (occurrence: US)
  Receive Date: 20220203
  Receipt Date: 20220203
  Transmission Date: 20220423
  Serious: Yes (Hospitalization, Other)
  Sender: FDA-Public Use
  Company Number: US-UNITED THERAPEUTICS-UNT-2021-026750

PATIENT
  Age: 23 Year
  Sex: Male

DRUGS (4)
  1. REMODULIN [Suspect]
     Active Substance: TREPROSTINIL
     Indication: Pulmonary arterial hypertension
     Dosage: UNK, CONTINUING
     Route: 058
     Dates: start: 20170121
  2. REMODULIN [Suspect]
     Active Substance: TREPROSTINIL
     Dosage: 0.114 ?G/KG, CONTINUING (AT A PUMP RATE OF 0.044 ML/HOUR)
     Route: 058
  3. REMODULIN [Suspect]
     Active Substance: TREPROSTINIL
     Dosage: 0.116 ?G/KG, CONTINUING
     Route: 058
  4. REMODULIN [Suspect]
     Active Substance: TREPROSTINIL
     Dosage: 0.119 ?G/KG, CONTINUING (AT A PUMP RATE OF 0.046 ML/HOUR)
     Route: 058

REACTIONS (3)
  - Hypoxia [Unknown]
  - Tachycardia [Unknown]
  - COVID-19 [Unknown]

NARRATIVE: CASE EVENT DATE: 20211227
